FAERS Safety Report 16692858 (Version 2)
Quarter: 2019Q3

REPORT INFORMATION
  Report Type: Report from Study
  Country: FI (occurrence: FI)
  Receive Date: 20190812
  Receipt Date: 20190821
  Transmission Date: 20191004
  Serious: Yes (Hospitalization, Other)
  Sender: FDA-Public Use
  Company Number: FI-MYLANLABS-2019M1074115

PATIENT
  Age: 66 Year
  Sex: Male

DRUGS (6)
  1. OLANZAPIN [Concomitant]
     Active Substance: OLANZAPINE
     Dosage: 1 DOSE, BID
  2. KETIPINOR [Concomitant]
     Active Substance: QUETIAPINE FUMARATE
     Dosage: 1 DOSE, TID
  3. ESCITALOPRAM [Concomitant]
     Active Substance: ESCITALOPRAM OXALATE
     Dosage: 1.5 DOSES, QD
  4. OPAMOX [Concomitant]
     Active Substance: OXAZEPAM
     Dosage: 1 DOSE, ONCE OR TWICE PER DAY IF NEEDED
  5. LEPONEX [Suspect]
     Active Substance: CLOZAPINE
     Indication: SCHIZOPHRENIA
     Dosage: UNK
     Dates: end: 20190803
  6. KEPPRA [Concomitant]
     Active Substance: LEVETIRACETAM
     Indication: EPILEPSY
     Dosage: 1 DOSE, BID

REACTIONS (4)
  - Pyrexia [Unknown]
  - Neutropenia [Unknown]
  - White blood cell count decreased [Unknown]
  - Non-Hodgkin^s lymphoma [Unknown]

NARRATIVE: CASE EVENT DATE: 201907
